FAERS Safety Report 4442494-1 (Version None)
Quarter: 2004Q3

REPORT INFORMATION
  Report Type: 
  Country: None (occurrence: None)
  Receive Date: 20040903
  Receipt Date: 20040709
  Transmission Date: 20050211
  Serious: Yes (Other)
  Sender: FDA-Public Use
  Company Number: 2004UW14266

PATIENT
  Age: 71 Year
  Sex: Female
  Weight: 72.5755 kg

DRUGS (8)
  1. CRESTOR [Suspect]
     Indication: BLOOD CHOLESTEROL INCREASED
     Dates: start: 20040101, end: 20040416
  2. ASPIRIN [Concomitant]
  3. MAVIK [Concomitant]
  4. PREVACID [Concomitant]
  5. FUROSEMIDE [Concomitant]
  6. FLEXERIL [Concomitant]
  7. ULTRACET [Concomitant]
  8. MULTIVITAMIN [Concomitant]

REACTIONS (2)
  - DIFFICULTY IN WALKING [None]
  - PAIN IN EXTREMITY [None]
